FAERS Safety Report 7650676-0 (Version None)
Quarter: 2011Q3

REPORT INFORMATION
  Report Type: 
  Country: None (occurrence: None)
  Receive Date: 20110802
  Receipt Date: 20110720
  Transmission Date: 20111222
  Serious: Yes (Other)
  Sender: FDA-Public Use
  Company Number: US-ASTRAZENECA-2008UW26762

PATIENT
  Age: 17127 Day
  Sex: Female
  Weight: 88.5 kg

DRUGS (16)
  1. SEROQUEL [Suspect]
     Dosage: 25 MG 2 AT NIGHT/BED TIME
     Route: 048
     Dates: start: 20021119
  2. GEODON [Concomitant]
     Dates: start: 20070101
  3. ZYPREXA ZYDIS [Concomitant]
     Dosage: 10 MG 2 AT NIGHT/BED TIME
  4. SEROQUEL [Suspect]
     Indication: DEPRESSION
     Dosage: 25 TO 200 MG
     Route: 048
     Dates: start: 20021119, end: 20050713
  5. TRAZODONE HYDROCHLORIDE [Concomitant]
     Dates: start: 20050101, end: 20060101
  6. PAXIL CR [Concomitant]
     Dosage: 25 MG 2 PO QAM
  7. DIOVAN [Concomitant]
  8. RISPERDAL [Concomitant]
     Dosage: 3 MG 1 QHS
  9. TRAZODONE HYDROCHLORIDE [Concomitant]
     Dosage: 100 MG 1/2-1 OHS
  10. SEROQUEL [Suspect]
     Dosage: 3000 MG AT NIGHT/BED TIME
     Route: 048
  11. RISPERDAL [Concomitant]
     Dates: start: 20051102, end: 20060501
  12. WELLBUTRIN [Concomitant]
     Dosage: 150 MG 1 EACH MORNING
  13. VISTARIL [Concomitant]
     Dosage: 25 MG 1BID PRN
  14. ZYPREXA [Concomitant]
     Dosage: 10 TO 50 MG
     Dates: start: 20020101, end: 20030101
  15. ZOLOFT [Concomitant]
     Dosage: 1 1/2 EACH MORNIG
  16. PAXIL [Concomitant]
     Dosage: 30 MG QAM
     Dates: start: 20030325

REACTIONS (4)
  - RENAL CANCER [None]
  - NAUSEA [None]
  - PAIN [None]
  - TYPE 2 DIABETES MELLITUS [None]
